FAERS Safety Report 12195548 (Version 1)
Quarter: 2016Q1

REPORT INFORMATION
  Report Type: Spontaneous
  Country: TR (occurrence: TR)
  Receive Date: 20160321
  Receipt Date: 20160321
  Transmission Date: 20160526
  Serious: Yes (Other)
  Sender: FDA-Public Use
  Company Number: TR-JNJFOC-20160316503

PATIENT

DRUGS (1)
  1. TOPAMAX [Suspect]
     Active Substance: TOPIRAMATE
     Indication: UNEVALUABLE EVENT
     Route: 048

REACTIONS (5)
  - Erythema [Unknown]
  - Tremor [Unknown]
  - Feeling abnormal [Unknown]
  - Drug dependence [Unknown]
  - Suicidal ideation [Unknown]
